FAERS Safety Report 24900907 (Version 1)
Quarter: 2025Q1

REPORT INFORMATION
  Report Type: Spontaneous
  Country: US (occurrence: US)
  Receive Date: 20250129
  Receipt Date: 20250129
  Transmission Date: 20250409
  Serious: Yes (Other)
  Sender: INCYTE
  Company Number: US-EVENT-001435

PATIENT

DRUGS (1)
  1. JAKAFI [Suspect]
     Active Substance: RUXOLITINIB
     Indication: VEXAS syndrome
     Dosage: 5 MILLIGRAM, BID
     Route: 065

REACTIONS (5)
  - Cytopenia [Unknown]
  - Arteritis [Unknown]
  - Rash [Unknown]
  - Product availability issue [Unknown]
  - Off label use [Unknown]
